FAERS Safety Report 23259532 (Version 1)
Quarter: 2023Q4

REPORT INFORMATION
  Report Type: Spontaneous
  Country: KR (occurrence: KR)
  Receive Date: 20231204
  Receipt Date: 20231204
  Transmission Date: 20240110
  Serious: Yes (Other)
  Sender: FDA-Public Use
  Company Number: KR-BIOCRYST PHARMACEUTICALS, INC.-2023BCR01061

PATIENT

DRUGS (1)
  1. PERAMIVIR [Suspect]
     Active Substance: PERAMIVIR
     Indication: Product used for unknown indication
     Dosage: 20 ML, ONCE, INJECTION
     Route: 042
     Dates: start: 20231106, end: 20231106

REACTIONS (2)
  - Seizure [Recovered/Resolved]
  - Cold sweat [Recovered/Resolved]

NARRATIVE: CASE EVENT DATE: 20231106
